FAERS Safety Report 10021685 (Version 1)
Quarter: 2014Q1

REPORT INFORMATION
  Report Type: Spontaneous
  Country: US (occurrence: None)
  Receive Date: 20140318
  Receipt Date: 20140318
  Transmission Date: 20141002
  Serious: No
  Sender: FDA-Public Use
  Company Number: None

PATIENT
  Age: 59 Year
  Sex: Female
  Weight: 58.97 kg

DRUGS (1)
  1. CARBAMIDE PEROXIDE [Suspect]
     Indication: DENTAL COSMETIC PROCEDURE
     Dates: start: 20140225, end: 20140225

REACTIONS (1)
  - Tooth discolouration [None]
